FAERS Safety Report 5715999-0 (Version None)
Quarter: 2008Q2

REPORT INFORMATION
  Report Type: 
  Country: None (occurrence: None)
  Receive Date: 20080422
  Receipt Date: 20071106
  Transmission Date: 20081010
  Serious: Yes (Life-Threatening, Hospitalization)
  Sender: FDA-Public Use
  Company Number: APP200700326

PATIENT
  Age: 62 Year
  Sex: Male
  Weight: 44 kg

DRUGS (5)
  1. HEPARIN SODIUM [Suspect]
     Indication: INDWELLING CATHETER MANAGEMENT
     Dosage: 5000 USP U/ML, DWELL
     Dates: end: 20070925
  2. HEPARIN SODIUM [Suspect]
     Indication: INDWELLING CATHETER MANAGEMENT
  3. HEPARIN SODIUM [Suspect]
     Indication: THROMBOSIS PROPHYLAXIS
     Dosage: 1000 USP U/ML, INJECTION
  4. SORAFENIB (SORAFENIB) [Concomitant]
  5. SUNITINUB (SUNITINIB) [Concomitant]

REACTIONS (1)
  - THROMBOCYTOPENIA [None]
